FAERS Safety Report 14565603 (Version 2)
Quarter: 2018Q1

REPORT INFORMATION
  Report Type: Spontaneous
  Country: DE (occurrence: DE)
  Receive Date: 20180223
  Receipt Date: 20180316
  Transmission Date: 20180509
  Serious: Yes (Hospitalization)
  Sender: FDA-Public Use
  Company Number: DE-ORION CORPORATION ORION PHARMA-18_00002997

PATIENT
  Age: 51 Year
  Sex: Male

DRUGS (2)
  1. METHOTREXATE (TRADE NAME UNKNOWN) [Suspect]
     Active Substance: METHOTREXATE
     Indication: IMMUNE THROMBOCYTOPENIC PURPURA
     Route: 048
  2. FOLIC ACID. [Concomitant]
     Active Substance: FOLIC ACID
     Dosage: ON THE DAY AFTER METHOTREXATE ADMINISTRATION
     Route: 065

REACTIONS (3)
  - Overdose [Not Recovered/Not Resolved]
  - Product use in unapproved indication [Unknown]
  - Colitis ischaemic [Not Recovered/Not Resolved]
